FAERS Safety Report 8316822-0 (Version None)
Quarter: 2012Q2

REPORT INFORMATION
  Report Type: 
  Country: None (occurrence: None)
  Receive Date: 20120425
  Receipt Date: 20120417
  Transmission Date: 20120825
  Serious: Yes (Hospitalization)
  Sender: FDA-Public Use
  Company Number: 2012SP010277

PATIENT
  Age: 55 Year
  Sex: Female

DRUGS (20)
  1. ZELNORM [Concomitant]
  2. LEXAPRO [Concomitant]
  3. AMLODIPINE [Concomitant]
  4. QUINAPRIL [Concomitant]
  5. CALCIUM CARBONATE [Concomitant]
  6. REBETOL [Suspect]
     Indication: PRODUCT USED FOR UNKNOWN INDICATION
     Dates: start: 20040801
  7. NAHCO3 [Concomitant]
  8. DILANTIN [Concomitant]
  9. PROBIOTICS [Concomitant]
  10. PEG-INTRON [Suspect]
     Indication: PRODUCT USED FOR UNKNOWN INDICATION
     Dates: start: 20040801
  11. SYNTHROID [Concomitant]
  12. PREMARIN [Concomitant]
  13. MIRTAZAPINE [Concomitant]
  14. REGLAN [Concomitant]
  15. PANTOPRAZOLE [Concomitant]
  16. GLARGINE INSULIN [Concomitant]
  17. NEXIUM [Concomitant]
  18. SIMVASTATIN [Concomitant]
  19. METOPROLOL TARTRATE [Concomitant]
  20. ALPHAGAN [Concomitant]

REACTIONS (4)
  - NAUSEA [None]
  - ENCEPHALITIS [None]
  - RASH [None]
  - VOMITING [None]
